FAERS Safety Report 9139244 (Version 2)
Quarter: 2013Q1

REPORT INFORMATION
  Report Type: Spontaneous
  Country: FR (occurrence: FR)
  Receive Date: 20130305
  Receipt Date: 20130322
  Transmission Date: 20140127
  Serious: Yes (Other)
  Sender: FDA-Public Use
  Company Number: PHHY2013FR017864

PATIENT
  Age: 97 Year
  Sex: Female
  Weight: 51.4 kg

DRUGS (9)
  1. EXELON PATCH [Suspect]
     Dosage: 4.6 MG, QD
     Route: 062
     Dates: start: 20120707
  2. EXELON PATCH [Suspect]
     Dosage: 9.5 MG, QD
     Route: 062
     Dates: start: 20120728, end: 20121028
  3. ALEPSAL [Concomitant]
     Dosage: 50 MG, DAILY
  4. COUMADINE [Concomitant]
     Dosage: 4 MG, DAILY
  5. COVERSYL [Concomitant]
     Dosage: 5 MG, DAILY
  6. IMOVANE [Concomitant]
     Dosage: 7.5 MG, DAILY
  7. FORLAX [Concomitant]
     Dosage: 4000 UKN, UNK
  8. DEROXAT [Concomitant]
     Dosage: 40 MG, DAILY
  9. HEMIGOXINE [Concomitant]
     Dosage: 1 DF, QD

REACTIONS (5)
  - Hallucination [Recovered/Resolved]
  - Decreased appetite [Recovered/Resolved]
  - Disinhibition [Recovering/Resolving]
  - Weight decreased [Recovering/Resolving]
  - Agitation [Recovering/Resolving]
